FAERS Safety Report 23275216 (Version 1)
Quarter: 2023Q4

REPORT INFORMATION
  Report Type: Spontaneous
  Country: US (occurrence: US)
  Receive Date: 20231208
  Receipt Date: 20231208
  Transmission Date: 20240110
  Serious: Yes (Hospitalization, Other)
  Sender: FDA-Public Use
  Company Number: US-ALEMBIC PHARMACUETICALS LIMITED-2023SCAL001186

PATIENT

DRUGS (1)
  1. FLUOXETINE [Suspect]
     Active Substance: FLUOXETINE HYDROCHLORIDE
     Indication: Product used for unknown indication
     Dosage: UNK
     Route: 065

REACTIONS (11)
  - Toxicity to various agents [Unknown]
  - Leukocytosis [Unknown]
  - Nystagmus [Unknown]
  - Electrocardiogram QT prolonged [Unknown]
  - Mydriasis [Recovered/Resolved]
  - Intentional overdose [Unknown]
  - Serotonin syndrome [Unknown]
  - Seizure [Unknown]
  - Tachycardia [Unknown]
  - Hypertonia [Unknown]
  - Hyperreflexia [Recovered/Resolved]
